FAERS Safety Report 4754010-5 (Version None)
Quarter: 2005Q3

REPORT INFORMATION
  Report Type: 
  Country: None (occurrence: None)
  Receive Date: 20050826
  Receipt Date: 20050815
  Transmission Date: 20060218
  Serious: Yes (Hospitalization, Disabling)
  Sender: FDA-Public Use
  Company Number: HQWYE522326JUL05

PATIENT
  Age: 82 Year
  Sex: Female
  Weight: 72.64 kg

DRUGS (5)
  1. PROTONIX [Suspect]
     Indication: PROPHYLAXIS
     Dosage: 40 MG 1X PER 1 DAY, INTRAVENOUS
     Route: 042
     Dates: start: 20050720, end: 20050723
  2. PROTONIX [Suspect]
     Indication: PROPHYLAXIS
     Dosage: 40 MG 1X PER 1 DAY
     Dates: start: 20050724
  3. COUMADIN (WARFARIN SODUM) [Concomitant]
  4. ALTACE [Concomitant]
  5. ATENOLOL [Concomitant]

REACTIONS (4)
  - HALLUCINATION, VISUAL [None]
  - MIGRAINE [None]
  - SCOTOMA [None]
  - THINKING ABNORMAL [None]
